FAERS Safety Report 24077354 (Version 1)
Quarter: 2024Q3

REPORT INFORMATION
  Report Type: Spontaneous
  Country: HR (occurrence: HR)
  Receive Date: 20240711
  Receipt Date: 20240711
  Transmission Date: 20241016
  Serious: No
  Sender: PIERRE FABRE MEDICAMENT
  Company Number: HR-PFM-2023-03992

PATIENT
  Age: 74 Year
  Sex: Female

DRUGS (25)
  1. PROPRANOLOL [Suspect]
     Active Substance: PROPRANOLOL HYDROCHLORIDE
     Indication: Hypotension
     Dosage: 40 MG, DAILY
     Route: 065
     Dates: start: 202201
  2. PROPRANOLOL [Suspect]
     Active Substance: PROPRANOLOL HYDROCHLORIDE
     Indication: Rectal haemorrhage
     Dosage: 40 MG, DAILY
     Route: 065
     Dates: start: 202210
  3. PROPRANOLOL [Suspect]
     Active Substance: PROPRANOLOL HYDROCHLORIDE
     Indication: Off label use
     Dosage: 40 MG, DAILY
     Route: 065
     Dates: start: 202210
  4. FUROSEMIDE [Concomitant]
     Active Substance: FUROSEMIDE
     Indication: Hypotension
     Dosage: 40 MG, DAILY
     Route: 065
     Dates: start: 202201
  5. FUROSEMIDE [Concomitant]
     Active Substance: FUROSEMIDE
     Indication: Rectal haemorrhage
     Dosage: 40 MG, DAILY
     Route: 065
     Dates: start: 202210
  6. FUROSEMIDE [Concomitant]
     Active Substance: FUROSEMIDE
     Dosage: 40 MG, DAILY
     Route: 065
     Dates: start: 202210
  7. AMLODIPINE [Concomitant]
     Active Substance: AMLODIPINE BESYLATE
     Indication: Rectal haemorrhage
     Dosage: 5 MG, DAILY
     Route: 065
     Dates: start: 202201
  8. PERINDOPRIL [Concomitant]
     Active Substance: PERINDOPRIL
     Indication: Rectal haemorrhage
     Dosage: 8 MG, DAILY
     Route: 065
     Dates: start: 202201
  9. VITAMIN D [Concomitant]
     Active Substance: VITAMIN D NOS
     Indication: Supplementation therapy
     Dosage: UNK, DAILY
     Route: 065
     Dates: start: 202201
  10. VITAMIN D [Concomitant]
     Active Substance: VITAMIN D NOS
     Dosage: UNK, DAILY
     Route: 065
     Dates: start: 202210
  11. VITAMIN D [Concomitant]
     Active Substance: VITAMIN D NOS
     Dosage: UNK, DAILY
     Route: 065
     Dates: start: 202210
  12. CIPROFLOXACIN [Concomitant]
     Active Substance: CIPROFLOXACIN
     Indication: Rectal haemorrhage
     Dosage: 250 MG, DAILY
     Route: 065
     Dates: start: 202201
  13. CIPROFLOXACIN [Concomitant]
     Active Substance: CIPROFLOXACIN
     Indication: Hypotension
     Dosage: 400 MG, DAILY
     Route: 065
     Dates: start: 202210
  14. METRONIDAZOLE [Concomitant]
     Active Substance: METRONIDAZOLE
     Indication: Rectal haemorrhage
     Dosage: 1200 MG, DAILY
     Route: 065
     Dates: start: 202201
  15. METRONIDAZOLE [Concomitant]
     Active Substance: METRONIDAZOLE
     Indication: Hypotension
     Dosage: 1500 MG, DAILY
     Route: 065
     Dates: start: 202210
  16. MESALAMINE [Concomitant]
     Active Substance: MESALAMINE
     Indication: Rectal haemorrhage
     Dosage: 3 G, DAILY
     Route: 065
     Dates: start: 202201
  17. MESALAMINE [Concomitant]
     Active Substance: MESALAMINE
     Indication: Hypotension
     Dosage: 3 G, DAILY
     Route: 065
     Dates: start: 202210
  18. MESALAMINE [Concomitant]
     Active Substance: MESALAMINE
     Dosage: 3 G, DAILY
     Route: 065
     Dates: start: 202210
  19. SEVELAMER CARBONATE [Concomitant]
     Active Substance: SEVELAMER CARBONATE
     Indication: Hypotension
     Dosage: 1600 MG, DAILY (BEGINNING OF TREATMENT- AT DISCHARGE)
     Route: 065
     Dates: start: 202201
  20. SEVELAMER CARBONATE [Concomitant]
     Active Substance: SEVELAMER CARBONATE
     Indication: Rectal haemorrhage
     Dosage: 1600 MG, DAILY
     Route: 065
     Dates: start: 202210
  21. SEVELAMER CARBONATE [Concomitant]
     Active Substance: SEVELAMER CARBONATE
     Dosage: 1600 MG, DAILY
     Route: 065
     Dates: start: 202210
  22. MEROPENEM [Concomitant]
     Active Substance: MEROPENEM
     Indication: Rectal haemorrhage
     Dosage: 500 MG, DAILY
     Route: 042
     Dates: start: 202210
  23. MEROPENEM [Concomitant]
     Active Substance: MEROPENEM
     Indication: Hypotension
     Dosage: 500 MG, DAILY
     Route: 042
     Dates: start: 202210
  24. PREDNISONE [Concomitant]
     Active Substance: PREDNISONE
     Indication: Hypotension
     Dosage: 40 MG, DAILY
     Route: 065
     Dates: start: 202210
  25. PREDNISONE [Concomitant]
     Active Substance: PREDNISONE
     Indication: Rectal haemorrhage
     Dosage: 40 MG, DAILY
     Route: 065
     Dates: start: 202210

REACTIONS (3)
  - Product use in unapproved indication [Unknown]
  - Product use issue [Unknown]
  - Off label use [Unknown]
